FAERS Safety Report 18947015 (Version 1)
Quarter: 2021Q1

REPORT INFORMATION
  Report Type: Spontaneous
  Country: US (occurrence: US)
  Receive Date: 20210226
  Receipt Date: 20210226
  Transmission Date: 20210420
  Serious: Yes (Hospitalization)
  Sender: FDA-Public Use
  Company Number: US-TEVA-2021-US-1882898

PATIENT
  Age: 54 Year
  Sex: Male

DRUGS (2)
  1. FLUCONAZOLE. [Suspect]
     Active Substance: FLUCONAZOLE
     Indication: FUNGAL INFECTION
     Route: 048
  2. ACETAMINOPHEN. [Suspect]
     Active Substance: ACETAMINOPHEN
     Indication: RHINALGIA
     Dosage: DAILY INTRANASAL USE OF CRUSHED TABLETS
     Route: 045

REACTIONS (5)
  - Nasal necrosis [Unknown]
  - Fungal infection [Unknown]
  - Intentional product misuse [Unknown]
  - Treatment failure [Unknown]
  - Sinusitis [Unknown]
